FAERS Safety Report 8134936-5 (Version None)
Quarter: 2012Q1

REPORT INFORMATION
  Report Type: 
  Country: None (occurrence: None)
  Receive Date: 20120214
  Receipt Date: 20120202
  Transmission Date: 20120608
  Serious: Yes (Other)
  Sender: FDA-Public Use
  Company Number: US-ELI_LILLY_AND_COMPANY-US201201000558

PATIENT
  Sex: Female

DRUGS (2)
  1. LANTUS [Concomitant]
     Dosage: UNK
     Dates: end: 20111201
  2. HUMALOG [Suspect]
     Indication: TYPE 2 DIABETES MELLITUS
     Dosage: 8 ML, TID
     Dates: start: 20111114, end: 20111201

REACTIONS (7)
  - EYE DISORDER [None]
  - BLINDNESS TRANSIENT [None]
  - DIZZINESS [None]
  - ARTHRALGIA [None]
  - GRIP STRENGTH DECREASED [None]
  - BALANCE DISORDER [None]
  - HEADACHE [None]
